FAERS Safety Report 12570700 (Version 1)
Quarter: 2016Q3

REPORT INFORMATION
  Report Type: Spontaneous
  Country: ES (occurrence: ES)
  Receive Date: 20160719
  Receipt Date: 20160719
  Transmission Date: 20161109
  Serious: Yes (Other)
  Sender: FDA-Public Use
  Company Number: ES-ABBVIE-16P-144-1678923-00

PATIENT
  Age: 7 Month
  Sex: Male

DRUGS (6)
  1. MIDAZOLAM [Concomitant]
     Active Substance: MIDAZOLAM\MIDAZOLAM HYDROCHLORIDE
     Indication: SEDATION
     Route: 042
     Dates: start: 20150309, end: 20150309
  2. CARVEDILOL. [Concomitant]
     Active Substance: CARVEDILOL
     Indication: CONGESTIVE CARDIOMYOPATHY
     Route: 048
     Dates: start: 20150223, end: 20150309
  3. SIMDAX [Suspect]
     Active Substance: LEVOSIMENDAN
     Indication: CONGESTIVE CARDIOMYOPATHY
     Dosage: 1 VIAL OF 5ML
     Route: 042
     Dates: start: 20150309, end: 20150309
  4. KETAMINA [Concomitant]
     Indication: SEDATION
     Route: 042
     Dates: start: 20150309, end: 20150309
  5. PROPOFOL. [Concomitant]
     Active Substance: PROPOFOL
     Indication: SEDATION
     Route: 042
     Dates: start: 20150309, end: 20150309
  6. CAPTOPRIL. [Concomitant]
     Active Substance: CAPTOPRIL
     Indication: CONGESTIVE CARDIOMYOPATHY
     Route: 048
     Dates: start: 20150223, end: 20150309

REACTIONS (4)
  - Bradycardia [Recovered/Resolved]
  - Rhabdomyolysis [Recovered/Resolved]
  - Drug administered to patient of inappropriate age [Unknown]
  - Hypokalaemia [Recovered/Resolved]

NARRATIVE: CASE EVENT DATE: 20150309
